FAERS Safety Report 16197170 (Version 1)
Quarter: 2019Q2

REPORT INFORMATION
  Report Type: Spontaneous
  Country: US (occurrence: US)
  Receive Date: 20190415
  Receipt Date: 20190415
  Transmission Date: 20190711
  Serious: No
  Sender: FDA-Public Use
  Company Number: US-PFIZER INC-2017536517

PATIENT
  Age: 33 Year
  Sex: Female

DRUGS (10)
  1. XELJANZ [Suspect]
     Active Substance: TOFACITINIB CITRATE
     Indication: ALOPECIA AREATA
     Dosage: 5 MG, TWICE A DAY (BID)[60 FOR 30 DAYS SUPPLY]
     Route: 048
  2. FOLIC ACID. [Concomitant]
     Active Substance: FOLIC ACID
     Dosage: 1 MG, UNK
  3. RETIN-A [Concomitant]
     Active Substance: TRETINOIN
     Dosage: UNK
  4. METFORMIN [Concomitant]
     Active Substance: METFORMIN HYDROCHLORIDE
     Dosage: UNK
  5. XELJANZ [Interacting]
     Active Substance: TOFACITINIB CITRATE
     Indication: ALOPECIA TOTALIS
     Dosage: 15 MG, DAILY (10 MG IN AM AND 5 MG IN PM )
     Dates: start: 20180926
  6. CARBAMAZEPINE. [Interacting]
     Active Substance: CARBAMAZEPINE
     Dosage: UNK
  7. METHOTREXATE. [Concomitant]
     Active Substance: METHOTREXATE
     Indication: RHEUMATOID ARTHRITIS
     Dosage: 20 MG, WEEKLY
     Dates: start: 2005
  8. CLINDAMYCIN. [Concomitant]
     Active Substance: CLINDAMYCIN
     Dosage: UNK
  9. KENALOG [Concomitant]
     Active Substance: TRIAMCINOLONE ACETONIDE
     Dosage: UNK
  10. DIFLUCAN [Concomitant]
     Active Substance: FLUCONAZOLE
     Dosage: UNK

REACTIONS (2)
  - Drug ineffective for unapproved indication [Unknown]
  - Drug interaction [Unknown]
